FAERS Safety Report 4371468-4 (Version None)
Quarter: 2004Q2

REPORT INFORMATION
  Report Type: 
  Country: None (occurrence: None)
  Receive Date: 20040602
  Receipt Date: 20040520
  Transmission Date: 20050107
  Serious: Yes (Death, Other)
  Sender: FDA-Public Use
  Company Number: 2004017260

PATIENT
  Age: 26 Year
  Sex: Female

DRUGS (2)
  1. GEODON [Suspect]
     Indication: BIPOLAR DISORDER
     Dosage: 80 MG (2 IN 1 D), UNKNOWN
     Dates: start: 20021101
  2. FLUOXETINE HCL [Suspect]
     Indication: ANXIETY
     Dosage: UNK (10 MG, 1 IN 1 D) UNKNOWN
     Dates: start: 20030123, end: 20030501

REACTIONS (19)
  - AKATHISIA [None]
  - ANXIETY [None]
  - COMA [None]
  - DEPRESSION [None]
  - FLASHBACK [None]
  - HALLUCINATION, AUDITORY [None]
  - HEADACHE [None]
  - HYPERPHAGIA [None]
  - HYPERSOMNIA [None]
  - INSOMNIA [None]
  - IRRITABILITY [None]
  - MANIA [None]
  - MEMORY IMPAIRMENT [None]
  - RESTLESSNESS [None]
  - SEDATION [None]
  - SUDDEN CARDIAC DEATH [None]
  - SUICIDAL IDEATION [None]
  - TREATMENT NONCOMPLIANCE [None]
  - WEIGHT INCREASED [None]
